FAERS Safety Report 8412682-8 (Version None)
Quarter: 2012Q2

REPORT INFORMATION
  Report Type: 
  Country: None (occurrence: None)
  Receive Date: 20120605
  Receipt Date: 20120521
  Transmission Date: 20120825
  Serious: No
  Sender: FDA-Public Use
  Company Number: US-ROXANE LABORATORIES, INC.-2012-RO-01305RO

PATIENT
  Age: 50 Year
  Sex: Female

DRUGS (2)
  1. FLUTICASONE FUROATE [Suspect]
     Route: 045
     Dates: end: 20120501
  2. FLUTICASONE FUROATE [Suspect]
     Indication: RHINITIS ALLERGIC
     Route: 045
     Dates: start: 20120101

REACTIONS (3)
  - ANOSMIA [None]
  - INCREASED UPPER AIRWAY SECRETION [None]
  - AGEUSIA [None]
